FAERS Safety Report 5023387-8 (Version None)
Quarter: 2006Q2

REPORT INFORMATION
  Report Type: 
  Country: None (occurrence: None)
  Receive Date: 20060606
  Receipt Date: 20060526
  Transmission Date: 20061013
  Serious: Yes (Other)
  Sender: FDA-Public Use
  Company Number: 200610561BNE

PATIENT
  Age: 62 Year
  Sex: Male

DRUGS (3)
  1. ASPIRIN [Suspect]
  2. PROTRIUM (PANTOPRAZOLE SODIUM) [Suspect]
     Indication: GASTROOESOPHAGEAL REFLUX DISEASE
     Dosage: 40 MG, TOTAL DAILY, ORAL
     Route: 048
  3. ATENOLOL [Suspect]
     Dosage: 25 MG, TOTAL DAILY,

REACTIONS (2)
  - PALPITATIONS [None]
  - VENTRICULAR EXTRASYSTOLES [None]
